FAERS Safety Report 25881831 (Version 1)
Quarter: 2025Q4

REPORT INFORMATION
  Report Type: Spontaneous
  Country: EU (occurrence: EU)
  Receive Date: 20251005
  Receipt Date: 20251005
  Transmission Date: 20260117
  Serious: Yes (Other)
  Sender: JOHNSON AND JOHNSON
  Company Number: None

PATIENT
  Age: 58 Year
  Sex: Male

DRUGS (10)
  1. SPRAVATO [Suspect]
     Active Substance: ESKETAMINE
     Indication: Major depression
     Dosage: 1ST ADMINISTRATION
     Route: 045
     Dates: start: 20250903, end: 20250903
  2. SPRAVATO [Suspect]
     Active Substance: ESKETAMINE
     Dosage: INDUCTION PHASE: 1ST DAY 56MG; REMAINING DAYS 56 OR 84 MG TWICE A WEEK; 2ND DOSE
     Route: 045
     Dates: start: 20250905, end: 20250905
  3. SPRAVATO [Suspect]
     Active Substance: ESKETAMINE
     Dosage: INDUCTION PHASE: 1ST DAY 56 MG; REMAINING DAYS 56 OR 84 MG TWICE WEEKLY; 3RD DOSE
     Route: 045
     Dates: start: 20250909, end: 20250909
  4. SPRAVATO [Suspect]
     Active Substance: ESKETAMINE
     Dosage: INDUCTION PHASE: 1ST DAY 56MG; REMAINING DAYS 56 OR 84 MG TWICE A WEEK; 4TH DOSE
     Route: 045
     Dates: start: 20250911, end: 20250911
  5. SPRAVATO [Suspect]
     Active Substance: ESKETAMINE
     Dosage: INDUCTION PHASE: 1ST DAY 56MG; REMAINING DAYS 56 OR 84 MG TWICE A WEEK; 5TH DOSE
     Route: 045
     Dates: start: 20250917, end: 20250917
  6. SPRAVATO [Suspect]
     Active Substance: ESKETAMINE
     Dosage: INDUCTION PHASE: 1ST DAY 56 MG; REMAINING DAYS 56 OR 84 MG TWICE WEEKLY; 6TH DOSE
     Route: 045
     Dates: start: 20250919, end: 20250919
  7. LITHIUM CARBONATE [Concomitant]
     Active Substance: LITHIUM CARBONATE
     Route: 048
  8. VENLAFAXINE [Concomitant]
     Active Substance: VENLAFAXINE HYDROCHLORIDE
     Route: 048
  9. RISPERIDONE [Concomitant]
     Active Substance: RISPERIDONE
     Route: 048
  10. MIRTAZAPINE [Concomitant]
     Active Substance: MIRTAZAPINE
     Route: 048

REACTIONS (3)
  - Somnolence [Recovered/Resolved]
  - Dizziness [Recovered/Resolved]
  - Hypertensive crisis [Recovered/Resolved]

NARRATIVE: CASE EVENT DATE: 20250905
